FAERS Safety Report 6057924-1 (Version None)
Quarter: 2009Q1

REPORT INFORMATION
  Report Type: 
  Country: None (occurrence: None)
  Receive Date: 20090129
  Receipt Date: 20090115
  Transmission Date: 20090719
  Serious: Yes (Other)
  Sender: FDA-Public Use
  Company Number: CZ-MERCK-0901CZE00002

PATIENT
  Age: 39 Year
  Sex: Female

DRUGS (1)
  1. ZOCOR [Suspect]
     Indication: INTENTIONAL DRUG MISUSE
     Route: 065

REACTIONS (5)
  - ACCIDENTAL OVERDOSE [None]
  - COMPARTMENT SYNDROME [None]
  - MUSCLE NECROSIS [None]
  - OFF LABEL USE [None]
  - RENAL FAILURE ACUTE [None]
